FAERS Safety Report 10667285 (Version 1)
Quarter: 2014Q4

REPORT INFORMATION
  Report Type: Spontaneous
  Country: AU (occurrence: AU)
  Receive Date: 20141222
  Receipt Date: 20141222
  Transmission Date: 20150529
  Serious: Yes (Death, Hospitalization)
  Sender: FDA-Public Use
  Company Number: PHHY2014AU165896

PATIENT
  Age: 56 Year
  Sex: Female

DRUGS (2)
  1. EVEROLIMUS [Suspect]
     Active Substance: EVEROLIMUS
     Indication: LUNG ADENOCARCINOMA STAGE IV
     Route: 065
  2. LETROZOLE. [Suspect]
     Active Substance: LETROZOLE
     Indication: LUNG ADENOCARCINOMA STAGE IV
     Route: 065

REACTIONS (8)
  - Carcinoid tumour [Fatal]
  - Dyspnoea [Unknown]
  - Pulmonary alveolar haemorrhage [Fatal]
  - Pleural effusion [Unknown]
  - Fatigue [Unknown]
  - Pulmonary veno-occlusive disease [Fatal]
  - Pulmonary hypertension [Fatal]
  - General physical health deterioration [Unknown]
